FAERS Safety Report 13961146 (Version 1)
Quarter: 2017Q3

REPORT INFORMATION
  Report Type: Spontaneous
  Country: US (occurrence: US)
  Receive Date: 20170912
  Receipt Date: 20170912
  Transmission Date: 20171128
  Serious: Yes (Other)
  Sender: FDA-Public Use
  Company Number: US-PFIZER INC-2017390471

PATIENT

DRUGS (1)
  1. DEPO-MEDROL [Suspect]
     Active Substance: METHYLPREDNISOLONE ACETATE
     Dosage: UNK
     Route: 008
     Dates: start: 20090730

REACTIONS (5)
  - Migraine [Unknown]
  - Fatigue [Unknown]
  - Hormone level abnormal [Unknown]
  - Autoimmune thyroiditis [Unknown]
  - Palpitations [Unknown]
